FAERS Safety Report 4364492-9 (Version None)
Quarter: 2004Q2

REPORT INFORMATION
  Report Type: 
  Country: None (occurrence: None)
  Receive Date: 20040519
  Receipt Date: 20040512
  Transmission Date: 20050107
  Serious: Yes (Hospitalization)
  Sender: FDA-Public Use
  Company Number: 230437K04USA

PATIENT
  Age: 57 Year
  Sex: Female

DRUGS (1)
  1. REBIF [Suspect]
     Indication: MULTIPLE SCLEROSIS
     Dosage: 44 MCG, 3 IN 1 WEEKS, SUBCUTANEOUS
     Route: 058
     Dates: start: 20030912

REACTIONS (5)
  - BLOOD CALCIUM INCREASED [None]
  - HYPERPARATHYROIDISM PRIMARY [None]
  - PARATHYROID HAEMORRHAGE [None]
  - PARATHYROID TUMOUR BENIGN [None]
  - THYROIDITIS [None]
